FAERS Safety Report 7964672-7 (Version None)
Quarter: 2011Q4

REPORT INFORMATION
  Report Type: 
  Country: None (occurrence: None)
  Receive Date: 20111208
  Receipt Date: 20111129
  Transmission Date: 20120403
  Serious: Yes (Hospitalization)
  Sender: FDA-Public Use
  Company Number: JP-JNJFOC-20111200589

PATIENT
  Age: 53 Year
  Sex: Female

DRUGS (5)
  1. REMICADE [Suspect]
     Dosage: 7TH INFUSION
     Route: 042
     Dates: start: 20110901
  2. MARZULENE [Concomitant]
     Route: 048
  3. ATELEC [Concomitant]
     Route: 048
  4. CANDESARTAN CILEXETIL [Concomitant]
     Route: 048
  5. REMICADE [Suspect]
     Indication: PSORIASIS
     Route: 042
     Dates: start: 20101203

REACTIONS (2)
  - ARTHRITIS [None]
  - CELLULITIS [None]
